FAERS Safety Report 20589344 (Version 1)
Quarter: 2022Q1

REPORT INFORMATION
  Report Type: Spontaneous
  Country: US (occurrence: None)
  Receive Date: 20220312
  Receipt Date: 20220312
  Transmission Date: 20220423
  Serious: No
  Sender: FDA-Public Use
  Company Number: None

PATIENT
  Age: 78 Year
  Sex: Female

DRUGS (1)
  1. OPSUMIT [Suspect]
     Active Substance: MACITENTAN
     Indication: Pulmonary arterial hypertension
     Dosage: FREQUENCY : DAILY;?
     Route: 048
     Dates: start: 20210115

REACTIONS (7)
  - Fall [None]
  - Craniocerebral injury [None]
  - Skin haemorrhage [None]
  - Headache [None]
  - Vision blurred [None]
  - Vision blurred [None]
  - Thrombocytopenia [None]

NARRATIVE: CASE EVENT DATE: 20220306
